FAERS Safety Report 24189969 (Version 1)
Quarter: 2024Q3

REPORT INFORMATION
  Report Type: Spontaneous
  Country: US (occurrence: US)
  Receive Date: 20240808
  Receipt Date: 20240808
  Transmission Date: 20241017
  Serious: Yes (Hospitalization)
  Sender: PFIZER
  Company Number: US-PFIZER INC-202400232086

PATIENT
  Age: 45 Year
  Sex: Female

DRUGS (17)
  1. XELJANZ [Suspect]
     Active Substance: TOFACITINIB CITRATE
     Dosage: 5 MG (60/BTL)
  2. XELJANZ XR [Suspect]
     Active Substance: TOFACITINIB CITRATE
     Dosage: 11 MG, 1X/DAY AT NIGHT
  3. CELEBREX [Concomitant]
     Active Substance: CELECOXIB
  4. CEVIMELINE [Concomitant]
     Active Substance: CEVIMELINE
  5. PROPRANOLOL [Concomitant]
     Active Substance: PROPRANOLOL HYDROCHLORIDE
  6. SPIRONOLACTONE AND HYDROCHLOROTHIAZIDE [Concomitant]
     Active Substance: HYDROCHLOROTHIAZIDE\SPIRONOLACTONE
  7. BENZOYL PEROXIDE\CLINDAMYCIN [Concomitant]
     Active Substance: BENZOYL PEROXIDE\CLINDAMYCIN
  8. HELIOCARE [Concomitant]
  9. TRETINOIN [Concomitant]
     Active Substance: TRETINOIN
  10. OMEGA-3 FATTY ACIDS [Concomitant]
     Active Substance: OMEGA-3 FATTY ACIDS
  11. L-METHYLFOLATE CALCIUM [CALCIUM LEVOMEFOLATE] [Concomitant]
  12. CALCIUM [Concomitant]
     Active Substance: CALCIUM
  13. PLAQUENIL [Concomitant]
     Active Substance: HYDROXYCHLOROQUINE SULFATE
  14. NALTREX [Concomitant]
  15. LOTEPREDNOL ETABONATE [Concomitant]
     Active Substance: LOTEPREDNOL ETABONATE
  16. RESTASIS [Concomitant]
     Active Substance: CYCLOSPORINE
  17. VITAMIN B [Concomitant]
     Active Substance: VITAMIN B

REACTIONS (4)
  - Norovirus infection [Unknown]
  - Condition aggravated [Unknown]
  - Liver function test increased [Unknown]
  - Pancreatic disorder [Unknown]
